FAERS Safety Report 8012241-5 (Version None)
Quarter: 2011Q4

REPORT INFORMATION
  Report Type: 
  Country: None (occurrence: None)
  Receive Date: 20111228
  Receipt Date: 20111219
  Transmission Date: 20120403
  Serious: Yes (Other)
  Sender: FDA-Public Use
  Company Number: AU-ASTRAZENECA-2011SE76623

PATIENT
  Sex: Male

DRUGS (1)
  1. NEXIUM [Suspect]
     Indication: GASTRIC DISORDER
     Route: 048

REACTIONS (8)
  - THINKING ABNORMAL [None]
  - ABNORMAL DREAMS [None]
  - ADVERSE DRUG REACTION [None]
  - MALAISE [None]
  - LOSS OF CONSCIOUSNESS [None]
  - DISTURBANCE IN ATTENTION [None]
  - TREMOR [None]
  - DEPRESSED MOOD [None]
